FAERS Safety Report 7458452-9 (Version None)
Quarter: 2011Q2

REPORT INFORMATION
  Report Type: 
  Country: None (occurrence: None)
  Receive Date: 20110504
  Receipt Date: 20110427
  Transmission Date: 20111010
  Serious: Yes (Hospitalization)
  Sender: FDA-Public Use
  Company Number: B0716448A

PATIENT
  Sex: Male

DRUGS (5)
  1. TEPRENONE [Concomitant]
     Dosage: 150MG PER DAY
     Route: 048
  2. FAMOTIDINE [Concomitant]
     Dosage: 20MG PER DAY
     Route: 048
  3. MAGMITT [Concomitant]
     Indication: CONSTIPATION
     Dosage: 660MG PER DAY
     Route: 048
  4. AMLODIPINE BESYLATE [Concomitant]
     Indication: HYPERTENSION
     Dosage: 5MG PER DAY
     Route: 048
  5. VALTREX [Suspect]
     Indication: HERPES ZOSTER
     Dosage: 3000MG PER DAY
     Route: 048
     Dates: start: 20110420, end: 20110427

REACTIONS (1)
  - DELIRIUM [None]
